FAERS Safety Report 10526576 (Version 1)
Quarter: 2014Q4

REPORT INFORMATION
  Report Type: Spontaneous
  Country: US (occurrence: None)
  Receive Date: 20141017
  Receipt Date: 20141017
  Transmission Date: 20150528
  Serious: Yes (Hospitalization)
  Sender: FDA-Public Use
  Company Number: None

PATIENT
  Age: 41 Year
  Sex: Female
  Weight: 61 kg

DRUGS (1)
  1. CROFAB [Suspect]
     Active Substance: CROTALIDAE POLYVALENT IMMUNE FAB (OVINE)
     Indication: SNAKE BITE
     Dosage: 4 VIALS IN 250 ML NS
     Route: 042
     Dates: start: 20140614

REACTIONS (5)
  - Erythema [None]
  - Infusion related reaction [None]
  - Muscle tightness [None]
  - Nasal congestion [None]
  - Urticaria [None]

NARRATIVE: CASE EVENT DATE: 20140614
